FAERS Safety Report 4984372-5 (Version None)
Quarter: 2006Q2

REPORT INFORMATION
  Report Type: 
  Country: None (occurrence: None)
  Receive Date: 20060427
  Receipt Date: 20050705
  Transmission Date: 20061013
  Serious: No
  Sender: FDA-Public Use
  Company Number: US-BRISTOL-MYERS SQUIBB COMPANY-13025648

PATIENT
  Age: 60 Year
  Sex: Female
  Weight: 60 kg

DRUGS (3)
  1. CYTOXAN [Suspect]
     Indication: BREAST CANCER
     Dates: start: 20050303
  2. ZOFRAN [Concomitant]
     Indication: PREMEDICATION
     Route: 042
  3. PREVACID [Concomitant]

REACTIONS (2)
  - ABDOMINAL DISCOMFORT [None]
  - NEUTROPENIA [None]
